FAERS Safety Report 11073854 (Version 1)
Quarter: 2015Q2

REPORT INFORMATION
  Report Type: Spontaneous
  Country: US (occurrence: US)
  Receive Date: 20150428
  Receipt Date: 20150428
  Transmission Date: 20150821
  Serious: Yes (Life-Threatening, Hospitalization, Other)
  Sender: FDA-Public Use
  Company Number: US-009507513-1504USA022674

PATIENT
  Age: 73 Year
  Sex: Male

DRUGS (6)
  1. PLAVIX [Concomitant]
     Active Substance: CLOPIDOGREL BISULFATE
  2. TOPROL XL [Concomitant]
     Active Substance: METOPROLOL SUCCINATE
  3. AMLODIPINE [Concomitant]
     Active Substance: AMLODIPINE BESYLATE
  4. ALDACTONE [Concomitant]
     Active Substance: SPIRONOLACTONE
  5. ZOCOR [Suspect]
     Active Substance: SIMVASTATIN
     Dosage: 10 MG/ ONCE DAILY
     Route: 048
     Dates: end: 201504
  6. VASOTEC [Concomitant]
     Active Substance: ENALAPRIL MALEATE

REACTIONS (1)
  - Rhabdomyolysis [Unknown]
